FAERS Safety Report 14551717 (Version 1)
Quarter: 2018Q1

REPORT INFORMATION
  Report Type: Spontaneous
  Country: PL (occurrence: PL)
  Receive Date: 20180220
  Receipt Date: 20180220
  Transmission Date: 20180509
  Serious: Yes (Other)
  Sender: FDA-Public Use
  Company Number: PL-AUROBINDO-AUR-APL-2018-004231

PATIENT
  Age: 54 Year
  Sex: Female

DRUGS (3)
  1. RIBAVIRIN FILM-COATED TABLET [Suspect]
     Active Substance: RIBAVIRIN
     Indication: HEPATITIS C
     Dosage: 1000 MG, QD IN PATIENTS WEIGHING {75 KG OR 1200 MG, QD IN PATIENTS WEIGHNING }75 KG (1)
     Route: 048
  2. EXVIERA [Suspect]
     Active Substance: DASABUVIR
     Indication: CHRONIC HEPATITIS C
     Dosage: 250 MG, BID
     Route: 065
  3. VIEKIRAX [Suspect]
     Active Substance: OMBITASVIR\PARITAPREVIR\RITONAVIR
     Indication: CHRONIC HEPATITIS C
     Dosage: 25/150/100 MG/DAY
     Route: 065

REACTIONS (1)
  - Hepatic failure [Unknown]
